FAERS Safety Report 9737078 (Version 2)
Quarter: 2013Q4

REPORT INFORMATION
  Report Type: Spontaneous
  Country: US (occurrence: US)
  Receive Date: 20131206
  Receipt Date: 20131206
  Transmission Date: 20140711
  Serious: Yes (Life-Threatening, Hospitalization)
  Sender: FDA-Public Use
  Company Number: US-JNJFOC-20130910052

PATIENT
  Age: 86 Year
  Sex: Female
  Weight: 85 kg

DRUGS (4)
  1. XARELTO [Suspect]
     Indication: CEREBROVASCULAR ACCIDENT PROPHYLAXIS
     Dosage: 6 PM
     Route: 048
     Dates: end: 20130915
  2. XARELTO [Suspect]
     Indication: ATRIAL FIBRILLATION
     Dosage: 6 PM
     Route: 048
     Dates: end: 20130915
  3. CIPROFLOXACIN [Concomitant]
     Indication: PRODUCT USED FOR UNKNOWN INDICATION
     Route: 048
     Dates: start: 20130827
  4. LEVOTHYROXINE [Concomitant]
     Indication: PRODUCT USED FOR UNKNOWN INDICATION
     Route: 048
     Dates: start: 20130827

REACTIONS (4)
  - Haematoma [Recovered/Resolved with Sequelae]
  - Tracheal stenosis [Recovered/Resolved with Sequelae]
  - Respiratory failure [Recovered/Resolved with Sequelae]
  - Haemoglobin decreased [Recovered/Resolved]
